FAERS Safety Report 6680033-5 (Version None)
Quarter: 2010Q2

REPORT INFORMATION
  Report Type: 
  Country: None (occurrence: None)
  Receive Date: 20100413
  Receipt Date: 20100330
  Transmission Date: 20101027
  Serious: Yes (Other)
  Sender: FDA-Public Use
  Company Number: US-AMGEN-KDC402675

PATIENT
  Sex: Female

DRUGS (18)
  1. NEULASTA [Suspect]
     Indication: CHEMOTHERAPY
  2. BEVACIZUMAB [Suspect]
     Route: 042
     Dates: start: 20100128
  3. DEXAMETHASONE [Suspect]
     Route: 065
  4. DOCETAXEL [Suspect]
     Route: 042
     Dates: start: 20100128
  5. TRASTUZUMAB [Suspect]
     Route: 042
     Dates: start: 20100128
  6. CARBOPLATIN [Suspect]
     Route: 042
     Dates: start: 20100128
  7. LISINOPRIL [Suspect]
     Route: 065
     Dates: start: 20020801, end: 20100318
  8. FISH OIL [Concomitant]
     Route: 065
     Dates: start: 20090901
  9. ACETYLSALICYLIC ACID [Concomitant]
     Route: 065
     Dates: start: 20070801
  10. OMEPRAZOLE [Concomitant]
     Route: 065
     Dates: start: 20090901
  11. ONDANSETRON HYDROCHLORIDE [Concomitant]
     Route: 065
     Dates: start: 20100128
  12. ACIDOPHILUS [Concomitant]
     Route: 065
     Dates: start: 20100204
  13. METFORMIN HCL [Concomitant]
     Route: 065
     Dates: start: 20070809
  14. PROCHLORPERAZINE [Concomitant]
     Route: 065
     Dates: start: 20100128
  15. ENZYMES [Concomitant]
  16. LOPERAMIDE HYDROCHLORIDE [Concomitant]
     Route: 065
     Dates: start: 20100202
  17. NYSTATIN [Concomitant]
     Route: 065
     Dates: start: 20100218
  18. FATTY ACID [Concomitant]
     Route: 065

REACTIONS (3)
  - BONE PAIN [None]
  - HYPERGLYCAEMIA [None]
  - HYPERTENSION [None]
